FAERS Safety Report 17278574 (Version 2)
Quarter: 2020Q1

REPORT INFORMATION
  Report Type: Spontaneous
  Country: US (occurrence: US)
  Receive Date: 20200116
  Receipt Date: 20200117
  Transmission Date: 20200409
  Serious: Yes (Other)
  Sender: FDA-Public Use
  Company Number: US-GALDERMA-US19056599

PATIENT
  Age: 34 Year
  Sex: Female

DRUGS (7)
  1. VALACYCLOVIR [Concomitant]
     Active Substance: VALACYCLOVIR HYDROCHLORIDE
     Indication: TRICHODYSPLASIA SPINULOSA
     Route: 061
  2. CIDOFOVIR. [Concomitant]
     Active Substance: CIDOFOVIR
     Dosage: 3% CREAM
     Route: 061
  3. METRONIDAZOLE (METRONIDAZOLE) [Suspect]
     Active Substance: METRONIDAZOLE
     Indication: TRICHODYSPLASIA SPINULOSA
     Dosage: 1%
     Route: 061
  4. MYCOPHENOLATE-MOFETIL [Concomitant]
     Active Substance: MYCOPHENOLATE MOFETIL
     Indication: IMMUNOSUPPRESSANT DRUG THERAPY
     Route: 065
  5. TACROLIMUS. [Concomitant]
     Active Substance: TACROLIMUS
     Indication: IMMUNOSUPPRESSANT DRUG THERAPY
     Route: 065
  6. CIDOFOVIR. [Concomitant]
     Active Substance: CIDOFOVIR
     Indication: TRICHODYSPLASIA SPINULOSA
     Dosage: 3% CREAM DAILY
     Route: 061
  7. PREDNISONE. [Concomitant]
     Active Substance: PREDNISONE
     Indication: IMMUNOSUPPRESSANT DRUG THERAPY
     Route: 065

REACTIONS (8)
  - Trichodysplasia spinulosa [Recovered/Resolved]
  - Condition aggravated [Recovered/Resolved]
  - Skin exfoliation [Unknown]
  - Drug ineffective for unapproved indication [Recovered/Resolved]
  - Transplant rejection [Unknown]
  - Deformity [Recovered/Resolved]
  - Intentional product use issue [Recovered/Resolved]
  - Pain of skin [Unknown]
